FAERS Safety Report 6282134-2 (Version None)
Quarter: 2009Q3

REPORT INFORMATION
  Report Type: 
  Country: None (occurrence: None)
  Receive Date: 20090724
  Receipt Date: 20090713
  Transmission Date: 20100115
  Serious: Yes (Hospitalization)
  Sender: FDA-Public Use
  Company Number: FR-ALLERGAN-0905710US

PATIENT
  Age: 34 Year
  Sex: Female

DRUGS (4)
  1. LUMIGAN [Suspect]
     Indication: GLAUCOMA
     Dosage: UNK, UNK
     Dates: end: 20080201
  2. COSOPT [Suspect]
     Indication: GLAUCOMA
     Dosage: UNK, UNK
     Dates: end: 20080201
  3. CARTROL [Suspect]
     Indication: GLAUCOMA
     Dosage: UNK, UNK
     Dates: start: 20080201, end: 20080503
  4. TIMOPTIC [Concomitant]
     Indication: GLAUCOMA
     Dosage: UNK, UNK
     Dates: end: 20080201

REACTIONS (2)
  - PRE-ECLAMPSIA [None]
  - PREGNANCY [None]
